FAERS Safety Report 19498005 (Version 2)
Quarter: 2021Q3

REPORT INFORMATION
  Report Type: Spontaneous
  Country: US (occurrence: US)
  Receive Date: 20210706
  Receipt Date: 20210805
  Transmission Date: 20211014
  Serious: No
  Sender: FDA-Public Use
  Company Number: US-PFIZER INC-2021672719

PATIENT
  Age: 10 Year
  Sex: Female
  Weight: 49.9 kg

DRUGS (2)
  1. GENOTROPIN [Suspect]
     Active Substance: SOMATROPIN
     Dosage: UNK
  2. GENOTROPIN [Suspect]
     Active Substance: SOMATROPIN
     Indication: GROWTH HORMONE DEFICIENCY
     Dosage: 1.4 MG INJECTED 6 DAYS A WEEK
     Dates: start: 202005

REACTIONS (8)
  - Poor quality product administered [Unknown]
  - Poor quality device used [Unknown]
  - Drug dose omission by device [Unknown]
  - Device information output issue [Unknown]
  - Incorrect dosage administered [Unknown]
  - Device failure [Unknown]
  - Product storage error [Unknown]
  - Device physical property issue [Unknown]

NARRATIVE: CASE EVENT DATE: 202008
